FAERS Safety Report 10607336 (Version 1)
Quarter: 2014Q4

REPORT INFORMATION
  Report Type: Spontaneous
  Country: US (occurrence: None)
  Receive Date: 20141124
  Receipt Date: 20141124
  Transmission Date: 20150529
  Serious: Yes (Hospitalization)
  Sender: FDA-Public Use
  Company Number: None

PATIENT
  Age: 88 Year
  Sex: Female
  Weight: 72.7 kg

DRUGS (14)
  1. EVISTA [Concomitant]
     Active Substance: RALOXIFENE HYDROCHLORIDE
  2. LANTUS [Concomitant]
     Active Substance: INSULIN GLARGINE
  3. LEVOTHYROXINE [Concomitant]
     Active Substance: LEVOTHYROXINE
  4. DABIGATRAN [Suspect]
     Active Substance: DABIGATRAN
     Indication: ATRIAL FIBRILLATION
     Dosage: DATE OF USE : CHRONIC
     Route: 048
  5. PERCOCET [Concomitant]
     Active Substance: ACETAMINOPHEN\OXYCODONE HYDROCHLORIDE
  6. BUMEX [Concomitant]
     Active Substance: BUMETANIDE
  7. ASPIRIN. [Suspect]
     Active Substance: ASPIRIN
     Indication: CORONARY ARTERY DISEASE
     Dosage: RECENT
     Route: 048
  8. METOPROLOL SUCCINATE. [Concomitant]
     Active Substance: METOPROLOL SUCCINATE
  9. HUMALOG [Concomitant]
     Active Substance: INSULIN LISPRO
  10. KCL [Concomitant]
     Active Substance: POTASSIUM CHLORIDE
  11. LATANOPROST. [Concomitant]
     Active Substance: LATANOPROST
  12. ATACAND [Concomitant]
     Active Substance: CANDESARTAN CILEXETIL
  13. NTG [Concomitant]
     Active Substance: NITROGLYCERIN
  14. COLACE [Concomitant]
     Active Substance: DOCUSATE SODIUM

REACTIONS (4)
  - Anaemia [None]
  - Gastritis erosive [None]
  - Dizziness [None]
  - Gastrointestinal haemorrhage [None]

NARRATIVE: CASE EVENT DATE: 20140323
